FAERS Safety Report 4717272-6 (Version None)
Quarter: 2005Q3

REPORT INFORMATION
  Report Type: 
  Country: None (occurrence: None)
  Receive Date: 20050715
  Receipt Date: 20050601
  Transmission Date: 20060218
  Serious: Yes (Death)
  Sender: FDA-Public Use
  Company Number: S05-CAN-02434-01

PATIENT
  Age: 59 Year
  Sex: Male

DRUGS (2)
  1. CELEXA [Suspect]
     Dosage: 15 MG QD
  2. GRAPEFRUIT JUICE [Suspect]

REACTIONS (10)
  - ANOREXIA [None]
  - DRY MOUTH [None]
  - FATIGUE [None]
  - HYPERHIDROSIS [None]
  - INSOMNIA [None]
  - MALAISE [None]
  - MUSCULOSKELETAL STIFFNESS [None]
  - NAUSEA [None]
  - TENSION [None]
  - THIRST [None]
